FAERS Safety Report 5558339-2 (Version None)
Quarter: 2007Q4

REPORT INFORMATION
  Report Type: 
  Country: None (occurrence: None)
  Receive Date: 20071214
  Receipt Date: 20071204
  Transmission Date: 20080405
  Serious: Yes (Other)
  Sender: FDA-Public Use
  Company Number: US-PFIZER INC-2007102090

PATIENT
  Sex: Male
  Weight: 84.09 kg

DRUGS (1)
  1. DILANTIN [Suspect]
     Indication: GRAND MAL CONVULSION

REACTIONS (2)
  - ANTICONVULSANT DRUG LEVEL DECREASED [None]
  - GRAND MAL CONVULSION [None]
